FAERS Safety Report 6974840-9 (Version None)
Quarter: 2010Q3

REPORT INFORMATION
  Report Type: 
  Country: None (occurrence: None)
  Receive Date: 20100909
  Receipt Date: 20081208
  Transmission Date: 20110219
  Serious: No
  Sender: FDA-Public Use
  Company Number: US-WYE-H07138008

PATIENT
  Sex: Female

DRUGS (2)
  1. PRISTIQ [Suspect]
     Indication: MAJOR DEPRESSION
     Dosage: UNKNOWN
  2. PRISTIQ [Suspect]
     Indication: HOT FLUSH

REACTIONS (2)
  - AGITATION [None]
  - WEIGHT DECREASED [None]
